FAERS Safety Report 6973372-1 (Version None)
Quarter: 2010Q3

REPORT INFORMATION
  Report Type: 
  Country: None (occurrence: None)
  Receive Date: 20100909
  Receipt Date: 20100902
  Transmission Date: 20110219
  Serious: Yes (Other)
  Sender: FDA-Public Use
  Company Number: US-JNJFOC-20100901507

PATIENT
  Sex: Female
  Weight: 99.79 kg

DRUGS (7)
  1. FENTANYL CITRATE [Suspect]
     Indication: BACK PAIN
     Dosage: NDC-0781-7243-55
     Route: 062
  2. FENTANYL CITRATE [Suspect]
     Dosage: NDC 0781-7242-55
     Route: 062
  3. ALBUTEROL [Concomitant]
     Indication: RESPIRATORY DISORDER
     Route: 055
  4. METFORMIN [Concomitant]
     Indication: DIABETES MELLITUS
     Route: 048
  5. CELEXA [Concomitant]
     Indication: BIPOLAR DISORDER
     Route: 048
  6. VISTARIL [Concomitant]
     Indication: SLEEP DISORDER
     Route: 048
  7. ATIVAN [Concomitant]
     Indication: ANXIETY
     Route: 048

REACTIONS (5)
  - BLOOD CHOLESTEROL INCREASED [None]
  - DRUG ADMINISTERED AT INAPPROPRIATE SITE [None]
  - PNEUMONIA [None]
  - PRODUCT ADHESION ISSUE [None]
  - THERAPEUTIC RESPONSE DECREASED [None]
